FAERS Safety Report 9552323 (Version 1)
Quarter: 2013Q3

REPORT INFORMATION
  Report Type: Spontaneous
  Country: US (occurrence: None)
  Receive Date: 20130924
  Receipt Date: 20130924
  Transmission Date: 20140515
  Serious: Yes (Other)
  Sender: FDA-Public Use
  Company Number: None

PATIENT
  Age: 62 Year
  Sex: Male
  Weight: 108.86 kg

DRUGS (3)
  1. GAMMAGARD [Suspect]
     Indication: INFLAMMATION
     Route: 042
  2. GAMMAGARD [Suspect]
     Indication: TOXIC NEUROPATHY
     Route: 042
  3. GAMMAGARD [Suspect]

REACTIONS (1)
  - Rash [None]
